FAERS Safety Report 23212850 (Version 19)
Quarter: 2025Q4

REPORT INFORMATION
  Report Type: Spontaneous
  Country: GB (occurrence: GB)
  Receive Date: 20231121
  Receipt Date: 20251211
  Transmission Date: 20260118
  Serious: Yes (Other)
  Sender: SANOFI AVENTIS
  Company Number: GB-SANDOZ-SDZ2023GB035563

PATIENT
  Age: 56 Year
  Sex: Female

DRUGS (10)
  1. CLOPIDOGREL BISULFATE [Suspect]
     Active Substance: CLOPIDOGREL BISULFATE
     Indication: Rheumatoid arthritis
     Dosage: UNK
     Route: 065
  2. CLOPIDOGREL BISULFATE [Suspect]
     Active Substance: CLOPIDOGREL BISULFATE
     Dosage: UNK (SECOND DOSE)
     Route: 065
  3. HYRIMOZ [Suspect]
     Active Substance: ADALIMUMAB-ADAZ
     Indication: Rheumatoid arthritis
     Dosage: 160 MG, QW
     Route: 058
     Dates: start: 20230911
  4. HYRIMOZ [Suspect]
     Active Substance: ADALIMUMAB-ADAZ
     Dosage: 240 DF, QW (120 DF, QW)
     Route: 058
     Dates: start: 20230911
  5. HYRIMOZ [Suspect]
     Active Substance: ADALIMUMAB-ADAZ
     Dosage: 80 MG, QW (40 MILLIGRAM HYRIMOZ 40 MG/0.8 ML SOLUTION FOR INJECTION IN PRE-FILLED PEN BIWEEKLY (Q2W)
     Route: 058
     Dates: start: 20230911
  6. HYRIMOZ [Suspect]
     Active Substance: ADALIMUMAB-ADAZ
     Dosage: 120 DF, QW (40 DOSAGE FORM (40.000DF TIW )/40 MILLIGRAM(BIWEEKLY)40 DOSAGE FORM(40.000DF TIW )
     Route: 058
     Dates: start: 20230911
  7. HYRIMOZ [Suspect]
     Active Substance: ADALIMUMAB-ADAZ
     Dosage: 40 MG, QW (40 MILLIGRAM HYRIMOZ 40 MG/0.8 ML SOLUTION FOR INJECTION IN PRE-FILLEDPEN BIWEEKLY (Q2W)(
     Route: 058
     Dates: start: 20230911
  8. HYRIMOZ [Suspect]
     Active Substance: ADALIMUMAB-ADAZ
     Dosage: 80 MG, QD
     Route: 058
     Dates: start: 20230911
  9. HYRIMOZ [Suspect]
     Active Substance: ADALIMUMAB-ADAZ
     Dosage: 240 MG, QW (120 DF, QW (40.000 DF TIW)
     Route: 058
     Dates: start: 20230911
  10. HYRIMOZ [Suspect]
     Active Substance: ADALIMUMAB-ADAZ
     Dosage: 120 MG, QW
     Route: 058

REACTIONS (9)
  - Decreased appetite [Not Recovered/Not Resolved]
  - Fatigue [Unknown]
  - Hypoglycaemia [Unknown]
  - Gastrooesophageal reflux disease [Not Recovered/Not Resolved]
  - Depression [Recovering/Resolving]
  - Constipation [Unknown]
  - Abdominal pain [Unknown]
  - Contusion [Unknown]
  - Drug ineffective [Unknown]
